FAERS Safety Report 24698255 (Version 2)
Quarter: 2024Q4

REPORT INFORMATION
  Report Type: Spontaneous
  Country: CA (occurrence: CA)
  Receive Date: 20241204
  Receipt Date: 20241216
  Transmission Date: 20250114
  Serious: Yes (Death)
  Sender: NOVARTIS
  Company Number: CA-002147023-NVSC2024CA231395

PATIENT
  Age: 87 Year
  Sex: Female

DRUGS (1)
  1. BEOVU [Suspect]
     Active Substance: BROLUCIZUMAB-DBLL
     Indication: Neovascular age-related macular degeneration
     Dosage: UNK (Q16W)
     Route: 031
     Dates: start: 20220616, end: 20240709

REACTIONS (1)
  - Death [Fatal]

NARRATIVE: CASE EVENT DATE: 20241016
